FAERS Safety Report 17167201 (Version 2)
Quarter: 2020Q2

REPORT INFORMATION
  Report Type: Report from Study
  Country: None (occurrence: US)
  Receive Date: 20191217
  Receipt Date: 20200409
  Transmission Date: 20200713
  Serious: Yes (Hospitalization, Other)
  Sender: FDA-Public Use
  Company Number: US-ABBVIE-19K-163-2917516-00

PATIENT
  Sex: Female
  Weight: 104.42 kg

DRUGS (2)
  1. HUMIRA [Suspect]
     Active Substance: ADALIMUMAB
     Indication: PSORIASIS
     Dosage: CITRATE FREE
     Route: 058
     Dates: start: 2019
  2. HUMIRA [Suspect]
     Active Substance: ADALIMUMAB
     Indication: CROHN^S DISEASE

REACTIONS (19)
  - Unresponsive to stimuli [Recovered/Resolved]
  - Fall [Recovered/Resolved]
  - Liver disorder [Unknown]
  - Hepatomegaly [Unknown]
  - Psoriasis [Recovering/Resolving]
  - Stomach mass [Not Recovered/Not Resolved]
  - Pain [Unknown]
  - Heart rate increased [Unknown]
  - Gastric disorder [Unknown]
  - Splenomegaly [Not Recovered/Not Resolved]
  - Nodule [Unknown]
  - Wrist fracture [Recovering/Resolving]
  - Synovial cyst [Unknown]
  - Multi-organ disorder [Not Recovered/Not Resolved]
  - Blood glucose decreased [Recovered/Resolved]
  - Dizziness [Not Recovered/Not Resolved]
  - Joint noise [Unknown]
  - Cardiac infection [Unknown]
  - Liver disorder [Not Recovered/Not Resolved]

NARRATIVE: CASE EVENT DATE: 2019
